FAERS Safety Report 24831296 (Version 1)
Quarter: 2025Q1

REPORT INFORMATION
  Report Type: Spontaneous
  Country: US (occurrence: None)
  Receive Date: 20250110
  Receipt Date: 20250110
  Transmission Date: 20250409
  Serious: Yes (Other)
  Sender: FDA-CTU
  Company Number: None

PATIENT
  Age: 42 Year
  Sex: Male
  Weight: 57 kg

DRUGS (2)
  1. CEFPODOXIME [Suspect]
     Active Substance: CEFPODOXIME
     Indication: Oropharyngeal pain
     Dosage: OTHER QUANTITY : 1 TABLET(S);?FREQUENCY : TWICE A DAY;?
     Route: 048
     Dates: start: 20241223, end: 20241224
  2. Dextromethorphan 15mg [Concomitant]

REACTIONS (3)
  - Lacrimation increased [None]
  - Ocular hyperaemia [None]
  - Eye swelling [None]

NARRATIVE: CASE EVENT DATE: 20241223
